FAERS Safety Report 19109410 (Version 2)
Quarter: 2021Q2

REPORT INFORMATION
  Report Type: Spontaneous
  Country: US (occurrence: US)
  Receive Date: 20210409
  Receipt Date: 20210505
  Transmission Date: 20210717
  Serious: No
  Sender: FDA-Public Use
  Company Number: US-ASTRAZENECA-2021A135788

PATIENT
  Age: 19693 Day
  Sex: Female
  Weight: 49.4 kg

DRUGS (1)
  1. SYMBICORT [Suspect]
     Active Substance: BUDESONIDE\FORMOTEROL FUMARATE DIHYDRATE
     Indication: ASTHMA
     Dosage: UNKNOWN DOSE, ONE PUFF TWICE DAILY BUT SHE ONLY TOOK IT ONE PUFF ONCE DAILY
     Route: 055
     Dates: start: 20210301, end: 20210304

REACTIONS (8)
  - Neck pain [Recovered/Resolved]
  - Intentional device misuse [Unknown]
  - Oropharyngeal pain [Recovered/Resolved]
  - Odynophagia [Recovered/Resolved]
  - Device malfunction [Unknown]
  - Off label use [Unknown]
  - Device delivery system issue [Unknown]
  - Device use issue [Unknown]

NARRATIVE: CASE EVENT DATE: 20210306
